FAERS Safety Report 7402898-1 (Version None)
Quarter: 2011Q2

REPORT INFORMATION
  Report Type: 
  Country: None (occurrence: None)
  Receive Date: 20110408
  Receipt Date: 20110324
  Transmission Date: 20111010
  Serious: Yes (Other)
  Sender: FDA-Public Use
  Company Number: CA-JNJFOC-20110311416

PATIENT
  Sex: Female
  Weight: 76 kg

DRUGS (2)
  1. REMICADE [Suspect]
     Indication: COLITIS ULCERATIVE
     Route: 042
  2. REMICADE [Suspect]
     Route: 042

REACTIONS (5)
  - ERYTHEMA [None]
  - OXYGEN SATURATION DECREASED [None]
  - HEART RATE INCREASED [None]
  - RESPIRATORY DEPRESSION [None]
  - INFUSION RELATED REACTION [None]
